FAERS Safety Report 9705323 (Version 2)
Quarter: 2013Q4

REPORT INFORMATION
  Report Type: Spontaneous
  Country: US (occurrence: US)
  Receive Date: 20131122
  Receipt Date: 20131125
  Transmission Date: 20140711
  Serious: Yes (Death, Life-Threatening, Hospitalization, Other)
  Sender: FDA-Public Use
  Company Number: US-009507513-1311USA008254

PATIENT
  Age: 50 Year
  Sex: Male

DRUGS (2)
  1. JANUVIA [Suspect]
     Indication: TYPE 2 DIABETES MELLITUS
     Dosage: 100 MG, QD
     Route: 048
     Dates: start: 201307
  2. ZETIA [Concomitant]
     Dosage: 10 MG, QD
     Dates: start: 200906

REACTIONS (3)
  - Renal failure [Fatal]
  - Intestinal obstruction [Fatal]
  - Renal cancer stage IV [Fatal]
